FAERS Safety Report 6765871-2 (Version None)
Quarter: 2010Q2

REPORT INFORMATION
  Report Type: 
  Country: None (occurrence: None)
  Receive Date: 20100611
  Receipt Date: 20100603
  Transmission Date: 20101027
  Serious: Yes (Hospitalization)
  Sender: FDA-Public Use
  Company Number: FR-ASTRAZENECA-2010SE24750

PATIENT
  Age: 18565 Day
  Sex: Female

DRUGS (18)
  1. NAROPIN [Suspect]
     Dosage: 15 MG
     Route: 065
     Dates: start: 20091201, end: 20091201
  2. SUFENTA PRESERVATIVE FREE [Suspect]
     Route: 042
     Dates: start: 20091201, end: 20091201
  3. PROPOFOL FRESENIUS [Suspect]
     Route: 042
     Dates: start: 20091201, end: 20091201
  4. ATRACURIUM HOSPIRA [Suspect]
     Route: 042
     Dates: start: 20091201, end: 20091201
  5. AUGMENTIN '125' [Suspect]
     Route: 042
     Dates: start: 20091201, end: 20091201
  6. KETAMINE HCL [Suspect]
     Route: 042
     Dates: start: 20091201, end: 20091201
  7. NICARDIPINE AGUETTANT [Suspect]
     Route: 042
     Dates: start: 20091201, end: 20091201
  8. SEVORANE [Suspect]
     Route: 055
     Dates: start: 20091201, end: 20091201
  9. DROPERIDOL [Suspect]
     Route: 042
     Dates: start: 20091201, end: 20091201
  10. NEURONTIN [Suspect]
     Route: 048
     Dates: start: 20091130, end: 20091201
  11. BETADINE [Suspect]
     Route: 003
     Dates: start: 20091130, end: 20091201
  12. BETADINE [Suspect]
     Route: 067
     Dates: start: 20091201, end: 20091201
  13. NORMACOL [Suspect]
     Route: 054
     Dates: start: 20091130, end: 20091130
  14. VENTOLIN [Concomitant]
  15. FLIXOTIDE [Concomitant]
  16. FORADIL [Concomitant]
  17. AERIUS [Concomitant]
  18. LOVENOX [Concomitant]

REACTIONS (1)
  - RENAL FAILURE ACUTE [None]
